FAERS Safety Report 5761832-0 (Version None)
Quarter: 2008Q2

REPORT INFORMATION
  Report Type: 
  Country: None (occurrence: None)
  Receive Date: 20080602
  Receipt Date: 20080521
  Transmission Date: 20081010
  Serious: Yes (Hospitalization)
  Sender: FDA-Public Use
  Company Number: 163-20785-08051287

PATIENT
  Age: 59 Year
  Sex: Male

DRUGS (1)
  1. THALOMID [Suspect]
     Indication: AMYLOIDOSIS
     Dosage: 50 MG, TWICE A WEEK, ORAL
     Route: 048
     Dates: start: 20061001

REACTIONS (2)
  - NEUROPATHY PERIPHERAL [None]
  - RENAL TRANSPLANT [None]
